FAERS Safety Report 24017041 (Version 1)
Quarter: 2024Q2

REPORT INFORMATION
  Report Type: Spontaneous
  Country: US (occurrence: US)
  Receive Date: 20240626
  Receipt Date: 20240626
  Transmission Date: 20240716
  Serious: No
  Sender: FDA-Public Use
  Company Number: US-BRISTOL-MYERS SQUIBB COMPANY-2024-101787

PATIENT

DRUGS (2)
  1. OPDIVO [Suspect]
     Active Substance: NIVOLUMAB
     Indication: Product used for unknown indication
     Dosage: 40 MG VIAL
  2. OPDIVO [Suspect]
     Active Substance: NIVOLUMAB
     Dosage: 100 MG VIAL

REACTIONS (1)
  - Product selection error [Unknown]
